FAERS Safety Report 20007101 (Version 1)
Quarter: 2021Q4

REPORT INFORMATION
  Report Type: Report from Study
  Country: CA (occurrence: CA)
  Receive Date: 20211028
  Receipt Date: 20211028
  Transmission Date: 20220303
  Serious: Yes (Hospitalization, Other)
  Sender: FDA-Public Use
  Company Number: CA-PFIZER INC-202101366952

PATIENT
  Age: 80 Year
  Sex: Male

DRUGS (4)
  1. PFIZER-BIONTECH COVID-19 VACCINE [Suspect]
     Active Substance: TOZINAMERAN
     Indication: COVID-19 immunisation
     Dosage: DOSE NUMBER UNKNOWN, SINGLE
     Route: 030
  2. RITUXIMAB [Suspect]
     Active Substance: RITUXIMAB
     Indication: Hairy cell leukaemia
     Dosage: UNK
     Route: 042
  3. ZELBORAF [Suspect]
     Active Substance: VEMURAFENIB
     Indication: Hairy cell leukaemia
     Dosage: 960 MG, 2X/DAY
     Route: 048
  4. CLADRIBINE [Concomitant]
     Active Substance: CLADRIBINE
     Dosage: UNK

REACTIONS (18)
  - Agranulocytosis [Recovered/Resolved]
  - Anaemia [Recovered/Resolved]
  - Asthenia [Recovered/Resolved]
  - BRAF gene mutation [Recovered/Resolved]
  - Benign prostatic hyperplasia [Recovered/Resolved]
  - Dyspnoea exertional [Recovered/Resolved]
  - Fall [Recovered/Resolved]
  - Fatigue [Recovered/Resolved]
  - Femur fracture [Recovered/Resolved]
  - Gastrointestinal lymphoma [Recovered/Resolved]
  - Injection site pain [Recovered/Resolved]
  - Liver palpable [Recovered/Resolved]
  - Osteoporosis [Recovered/Resolved]
  - Overgrowth bacterial [Recovered/Resolved]
  - Pancytopenia [Recovered/Resolved]
  - Pruritus [Recovered/Resolved]
  - Rash [Recovered/Resolved]
  - Off label use [Recovered/Resolved]
